FAERS Safety Report 5160557-2 (Version None)
Quarter: 2006Q4

REPORT INFORMATION
  Report Type: 
  Country: None (occurrence: None)
  Receive Date: 20061121
  Receipt Date: 20060818
  Transmission Date: 20070319
  Serious: Yes (Hospitalization, Other)
  Sender: FDA-Public Use
  Company Number: 2005161544

PATIENT
  Age: 59 Year
  Sex: Male
  Weight: 70.7611 kg

DRUGS (4)
  1. CELEBREX [Suspect]
     Indication: PAIN
  2. BEXTRA [Suspect]
     Indication: OSTEOARTHRITIS
     Dosage: 10 + 20 MG (10 MG, 1 IN 1 D) - SEE IMAGE
     Dates: start: 20031003, end: 20040806
  3. BEXTRA [Suspect]
     Indication: OSTEOARTHRITIS
     Dosage: 10 + 20 MG (10 MG, 1 IN 1 D) - SEE IMAGE
     Dates: start: 20041122, end: 20050310
  4. VIOXX [Suspect]

REACTIONS (10)
  - CARDIOVASCULAR DISORDER [None]
  - CAROTID ARTERY STENOSIS [None]
  - CHEST DISCOMFORT [None]
  - CHEST PAIN [None]
  - DYSARTHRIA [None]
  - DYSPNOEA [None]
  - HYPOAESTHESIA [None]
  - SPEECH DISORDER [None]
  - THROMBOSIS [None]
  - TRANSIENT ISCHAEMIC ATTACK [None]
